FAERS Safety Report 7138606-1 (Version None)
Quarter: 2010Q4

REPORT INFORMATION
  Report Type: 
  Country: None (occurrence: None)
  Receive Date: 20101130
  Receipt Date: 20101130
  Transmission Date: 20110411
  Serious: Yes (Other)
  Sender: FDA-Public Use
  Company Number: None

PATIENT
  Sex: Female

DRUGS (1)
  1. ANASTROZOLE [Suspect]
     Indication: BREAST CANCER
     Dosage: 1 MG DAILY ORAL
     Route: 048
     Dates: start: 20100801, end: 20100901

REACTIONS (9)
  - ANXIETY [None]
  - COUGH [None]
  - DIZZINESS [None]
  - HOMOSEXUALITY [None]
  - MUSCULOSKELETAL PAIN [None]
  - NAUSEA [None]
  - PRODUCT SUBSTITUTION ISSUE [None]
  - SLEEP DISORDER [None]
  - VOMITING [None]
